FAERS Safety Report 4354768-3 (Version None)
Quarter: 2004Q2

REPORT INFORMATION
  Report Type: 
  Country: None (occurrence: None)
  Receive Date: 20040507
  Receipt Date: 20040415
  Transmission Date: 20050107
  Serious: Yes (Other)
  Sender: FDA-Public Use
  Company Number: US-BRISTOL-MYERS SQUIBB COMPANY-12577847

PATIENT
  Age: 25 Year
  Sex: Female

DRUGS (9)
  1. IFOSFAMIDE [Suspect]
     Indication: BONE SARCOMA
     Dosage: 12.0 G/M2/COURSE DR 60 G/M2 CD
  2. CYCLOPHOSPHAMIDE [Suspect]
     Indication: BONE SARCOMA
     Dosage: 12.0 G/M2
  3. ETOPOSIDE [Concomitant]
  4. METHOTREXATE [Concomitant]
  5. DOXORUBICIN HCL [Concomitant]
  6. CISPLATIN [Concomitant]
  7. VINCRISTINE [Concomitant]
  8. ACTINOMYCIN [Concomitant]
  9. CONTRACEPTIVE [Concomitant]

REACTIONS (1)
  - PREMATURE MENOPAUSE [None]
